FAERS Safety Report 17851314 (Version 1)
Quarter: 2020Q2

REPORT INFORMATION
  Report Type: Spontaneous
  Country: US (occurrence: US)
  Receive Date: 20200602
  Receipt Date: 20200602
  Transmission Date: 20200714
  Serious: No
  Sender: FDA-Public Use
  Company Number: US-UNITED THERAPEUTICS-UNT-2020-008114

PATIENT
  Sex: Male

DRUGS (3)
  1. UPTRAVI [Suspect]
     Active Substance: SELEXIPAG
     Indication: PRODUCT USED FOR UNKNOWN INDICATION
     Dosage: UNK
     Route: 065
  2. TYVASO [Suspect]
     Active Substance: TREPROSTINIL
     Indication: PULMONARY ARTERIAL HYPERTENSION
     Dosage: UNK
     Dates: start: 20171230
  3. TYVASO [Suspect]
     Active Substance: TREPROSTINIL
     Dosage: UNK, QID

REACTIONS (4)
  - Dyspnoea exertional [Not Recovered/Not Resolved]
  - Pain [Unknown]
  - Restless legs syndrome [Unknown]
  - Therapy cessation [Unknown]
